FAERS Safety Report 17829591 (Version 1)
Quarter: 2020Q2

REPORT INFORMATION
  Report Type: Spontaneous
  Country: NL (occurrence: FR)
  Receive Date: 20200527
  Receipt Date: 20200527
  Transmission Date: 20200714
  Serious: Yes (Death, Life-Threatening)
  Sender: FDA-Public Use
  Company Number: FR-FRESENIUS KABI-FK202004966

PATIENT
  Age: 11 Day
  Sex: Male

DRUGS (1)
  1. SODIUM CHLORIDE (MANUFACTURER UNKNOWN) [Suspect]
     Active Substance: SODIUM CHLORIDE
     Indication: HYPOTENSION
     Dosage: 12 ML TOTAL
     Route: 041
     Dates: start: 20200416, end: 20200416

REACTIONS (6)
  - Wrong strength [Fatal]
  - Acidosis [Recovered/Resolved]
  - Renal failure [Not Recovered/Not Resolved]
  - Cardiac arrest [Fatal]
  - Hyperchloraemia [Recovered/Resolved]
  - Hypernatraemia [Recovered/Resolved]

NARRATIVE: CASE EVENT DATE: 20200416
